FAERS Safety Report 15614746 (Version 1)
Quarter: 2018Q4

REPORT INFORMATION
  Report Type: Spontaneous
  Country: US (occurrence: US)
  Receive Date: 20181113
  Receipt Date: 20181113
  Transmission Date: 20190205
  Serious: No
  Sender: FDA-Public Use
  Company Number: US-BAUSCH-BL-2017-030462

PATIENT
  Age: 74 Year
  Sex: Female

DRUGS (1)
  1. MIOCHOL E [Suspect]
     Active Substance: ACETYLCHOLINE CHLORIDE
     Indication: PRODUCT USED FOR UNKNOWN INDICATION
     Dosage: IN ONE EYE
     Route: 047
     Dates: start: 20171027

REACTIONS (2)
  - Corneal deposits [Unknown]
  - Product deposit [Unknown]

NARRATIVE: CASE EVENT DATE: 20171027
